FAERS Safety Report 5095514-8 (Version None)
Quarter: 2006Q3

REPORT INFORMATION
  Report Type: 
  Country: None (occurrence: None)
  Receive Date: 20060831
  Receipt Date: 20060831
  Transmission Date: 20061208
  Serious: Yes (Hospitalization)
  Sender: FDA-Public Use
  Company Number: None

PATIENT
  Age: 80 Year
  Sex: Female
  Weight: 72.6662 kg

DRUGS (10)
  1. CELEBREX [Suspect]
     Indication: PAIN
  2. ATIVAN [Concomitant]
  3. HUMABID [Concomitant]
  4. LOPRESSOR [Concomitant]
  5. NORVASC [Concomitant]
  6. PEPCID [Concomitant]
  7. PLAVIX [Concomitant]
  8. SURFAK [Concomitant]
  9. TYLENOL W/ CODEINE NO. 3 [Concomitant]
  10. ZETIA [Concomitant]

REACTIONS (4)
  - ARTERIOSCLEROSIS [None]
  - HAEMODIALYSIS [None]
  - NEPHRITIS INTERSTITIAL [None]
  - RENAL FAILURE ACUTE [None]
